FAERS Safety Report 17780055 (Version 2)
Quarter: 2021Q2

REPORT INFORMATION
  Report Type: Spontaneous
  Country: RO (occurrence: RO)
  Receive Date: 20200514
  Receipt Date: 20210609
  Transmission Date: 20210716
  Serious: Yes (Hospitalization, Other)
  Sender: FDA-Public Use
  Company Number: RO-AUROBINDO-AUR-APL-2020-024303

PATIENT
  Age: 46 Year
  Sex: Male

DRUGS (2)
  1. OMEPRAZOLE. [Suspect]
     Active Substance: OMEPRAZOLE
     Indication: PRODUCT USED FOR UNKNOWN INDICATION
     Dosage: 7 PILLS
     Route: 048
  2. UNIQUET [Suspect]
     Active Substance: QUETIAPINE
     Indication: PRODUCT USED FOR UNKNOWN INDICATION
     Dosage: APPROXIMETELY 50 PILLS
     Route: 048

REACTIONS (4)
  - Pneumonia aspiration [Unknown]
  - Suicide attempt [Unknown]
  - Acute respiratory failure [Unknown]
  - Coma [Unknown]
